FAERS Safety Report 25853624 (Version 1)
Quarter: 2025Q3

REPORT INFORMATION
  Report Type: Spontaneous
  Country: US (occurrence: None)
  Receive Date: 20250926
  Receipt Date: 20250926
  Transmission Date: 20251020
  Serious: Yes (Hospitalization, Other)
  Sender: FDA-CTU
  Company Number: None

PATIENT
  Age: 83 Year
  Sex: Male
  Weight: 72.9 kg

DRUGS (2)
  1. KISUNLA [Suspect]
     Active Substance: DONANEMAB-AZBT
     Indication: Dementia Alzheimer^s type
     Dosage: 700 MG EVERY 4 WEEKS INTRAVENOUS
     Route: 042
     Dates: start: 20250829, end: 20250926
  2. KISUNLA [Concomitant]
     Active Substance: DONANEMAB-AZBT
     Dates: start: 20250829, end: 20250926

REACTIONS (8)
  - Nausea [None]
  - Dizziness [None]
  - Dizziness [None]
  - Product administration interrupted [None]
  - Chest pain [None]
  - Dyspnoea [None]
  - Muscle tightness [None]
  - Hypertension [None]

NARRATIVE: CASE EVENT DATE: 20250926
